FAERS Safety Report 10256635 (Version 4)
Quarter: 2014Q3

REPORT INFORMATION
  Report Type: Report from Study
  Country: IE (occurrence: IE)
  Receive Date: 20140624
  Receipt Date: 20140804
  Transmission Date: 20150326
  Serious: Yes (Hospitalization, Other)
  Sender: FDA-Public Use
  Company Number: ALCN2014IE003715

PATIENT
  Age: 43 Year
  Sex: Male

DRUGS (7)
  1. AUGMENTIN [Concomitant]
     Active Substance: AMOXICILLIN\CLAVULANATE POTASSIUM
     Indication: RESPIRATORY TRACT INFECTION
     Dosage: 375 MG, TID
     Route: 048
  2. DIAMOX SEQUELS [Suspect]
     Active Substance: ACETAZOLAMIDE
     Dosage: 500 MG, ONCE/SINGLE
     Route: 042
  3. KLACID//CLARITHROMYCIN [Concomitant]
     Indication: RESPIRATORY TRACT INFECTION
     Dosage: 500 MG, BID
     Route: 048
  4. AZOPT [Suspect]
     Active Substance: BRINZOLAMIDE
     Route: 047
  5. PILOCARPINE [Suspect]
     Active Substance: PILOCARPINE
     Route: 047
  6. IOPIDINE [Suspect]
     Active Substance: APRACLONIDINE HYDROCHLORIDE
     Route: 047
  7. BETOPTIC [Suspect]
     Active Substance: BETAXOLOL HYDROCHLORIDE
     Route: 047

REACTIONS (3)
  - Drug ineffective [Recovered/Resolved]
  - Angle closure glaucoma [Recovered/Resolved]
  - Choroidal effusion [Recovered/Resolved]
